FAERS Safety Report 9836186 (Version 2)
Quarter: 2014Q4

REPORT INFORMATION
  Report Type: Report from Study
  Country: ZA (occurrence: ZA)
  Receive Date: 20140123
  Receipt Date: 20141118
  Transmission Date: 20150529
  Serious: Yes (Death, Other)
  Sender: FDA-Public Use
  Company Number: ZA-AMGEN-ZAFNI2014004239

PATIENT
  Age: 26 Year
  Sex: Male

DRUGS (13)
  1. SIMVASTATIN. [Concomitant]
     Active Substance: SIMVASTATIN
     Dosage: 10 MG, QD
     Route: 048
  2. ZYVOXID [Concomitant]
     Active Substance: LINEZOLID
  3. STOPAYNE                           /00012603/ [Concomitant]
     Dosage: 2 TID AS NECESSARY, UNK
     Route: 048
  4. TITRALAC [Concomitant]
     Active Substance: CALCIUM CARBONATE
     Dosage: 2 UNK, TID
     Route: 048
  5. ONE ALPHA [Concomitant]
     Active Substance: ALFACALCIDOL
     Dosage: 0.25 MUG, QD
     Route: 048
  6. LONITEN [Concomitant]
     Active Substance: MINOXIDIL
     Dosage: 10 MG, QD
     Route: 048
  7. ENO TUMS [Concomitant]
     Dosage: 2 UNK, TID
     Route: 048
  8. CIPLAVASC [Concomitant]
     Dosage: 5 MG, QD
     Route: 048
  9. ALTOSEC                            /00661201/ [Concomitant]
     Dosage: 20 MG, QD
     Route: 048
  10. DARBEPOETIN ALFA [Suspect]
     Active Substance: DARBEPOETIN ALFA
     Indication: NEPHROGENIC ANAEMIA
     Dosage: 40 MUG, QWK
     Route: 058
     Dates: start: 20130506
  11. VENOFER [Concomitant]
     Active Substance: IRON SUCROSE
     Dosage: 100 MG, AS NECESSARY
     Route: 042
  12. CO DIOVAN [Concomitant]
     Dosage: 160 MG, QD
     Route: 048
  13. INVANZ [Concomitant]
     Active Substance: ERTAPENEM SODIUM

REACTIONS (2)
  - Fall [Unknown]
  - Subdural haemorrhage [Fatal]

NARRATIVE: CASE EVENT DATE: 20131206
